FAERS Safety Report 6744921-3 (Version None)
Quarter: 2010Q2

REPORT INFORMATION
  Report Type: 
  Country: None (occurrence: None)
  Receive Date: 20100527
  Receipt Date: 20100519
  Transmission Date: 20101027
  Serious: Yes (Hospitalization, Disabling)
  Sender: FDA-Public Use
  Company Number: JP-BAXTER-2010BH013991

PATIENT
  Age: 71 Year
  Sex: Male

DRUGS (6)
  1. ENDOXAN BAXTER [Suspect]
     Indication: NASAL SINUS CANCER
     Route: 065
     Dates: start: 19960101
  2. PREDONINE [Suspect]
     Indication: NASAL SINUS CANCER
     Route: 065
  3. PREDNISOLONE [Suspect]
     Indication: NASAL SINUS CANCER
     Route: 065
     Dates: start: 20081216, end: 20081219
  4. DOXORUBICIN HCL [Suspect]
     Indication: NASAL SINUS CANCER
     Route: 065
  5. VINCRISTINE SULFATE [Suspect]
     Indication: NASAL SINUS CANCER
     Route: 065
  6. ETOPOSIDE [Suspect]
     Indication: NASAL SINUS CANCER
     Route: 065

REACTIONS (1)
  - FUNGAL INFECTION [None]
